FAERS Safety Report 4804517-7 (Version None)
Quarter: 2005Q4

REPORT INFORMATION
  Report Type: 
  Country: None (occurrence: None)
  Receive Date: 20051018
  Receipt Date: 20051018
  Transmission Date: 20060501
  Serious: Yes (Other)
  Sender: FDA-Public Use
  Company Number: None

PATIENT
  Sex: Male
  Weight: 64 kg

DRUGS (5)
  1. LINEZOLID 600 MG PFIZER [Suspect]
     Indication: ENDOCARDITIS
     Dosage: 600 MG BID PO
     Route: 048
     Dates: start: 20050914, end: 20051013
  2. TORSEMIDE [Concomitant]
  3. METOPROLOL [Concomitant]
  4. PANTOPRAZOLE [Concomitant]
  5. ALBUTEROL [Concomitant]

REACTIONS (2)
  - LACTIC ACIDOSIS [None]
  - NAUSEA [None]
